FAERS Safety Report 4522392-5 (Version None)
Quarter: 2004Q4

REPORT INFORMATION
  Report Type: 
  Country: None (occurrence: None)
  Receive Date: 20041209
  Receipt Date: 20041202
  Transmission Date: 20050328
  Serious: Yes (Other)
  Sender: FDA-Public Use
  Company Number: PHBS2004JP16379

PATIENT

DRUGS (1)
  1. VOLTAREN [Suspect]
     Indication: PYREXIA
     Route: 048
     Dates: start: 20040101, end: 20040101

REACTIONS (2)
  - BLOOD CREATININE INCREASED [None]
  - HYPOALBUMINAEMIA [None]
